FAERS Safety Report 9731553 (Version 1)
Quarter: 2013Q4

REPORT INFORMATION
  Report Type: Spontaneous
  Country: US (occurrence: None)
  Receive Date: 20131204
  Receipt Date: 20131204
  Transmission Date: 20140711
  Serious: Yes (Other)
  Sender: FDA-Public Use
  Company Number: None

PATIENT
  Age: 62 Year
  Sex: Female
  Weight: 110.22 kg

DRUGS (1)
  1. CIPRO [Suspect]
     Indication: URINARY TRACT INFECTION
     Dates: start: 20130805, end: 20130810

REACTIONS (8)
  - Gait disturbance [None]
  - Pain [None]
  - Arthralgia [None]
  - Influenza like illness [None]
  - Chills [None]
  - Musculoskeletal stiffness [None]
  - Asthenia [None]
  - Pruritus [None]
